FAERS Safety Report 5625928-6 (Version None)
Quarter: 2008Q1

REPORT INFORMATION
  Report Type: 
  Country: None (occurrence: None)
  Receive Date: 20080212
  Receipt Date: 20080212
  Transmission Date: 20080703
  Serious: No
  Sender: FDA-Public Use
  Company Number: None

PATIENT
  Age: 41 Year
  Sex: Female
  Weight: 83.9154 kg

DRUGS (2)
  1. AMBIEN [Suspect]
     Indication: INSOMNIA
     Dosage: 10 MG  1 PER NIGHT PO
     Route: 048
  2. ZOLPIDEM TARTRATE [Suspect]
     Dosage: 10 MG  1 PER NIGHT  PO
     Route: 048

REACTIONS (5)
  - ABNORMAL SLEEP-RELATED EVENT [None]
  - AMNESIA [None]
  - HALLUCINATION [None]
  - SLEEP-RELATED EATING DISORDER [None]
  - SOMNAMBULISM [None]
